FAERS Safety Report 5513285-5 (Version None)
Quarter: 2007Q4

REPORT INFORMATION
  Report Type: 
  Country: None (occurrence: None)
  Receive Date: 20071112
  Receipt Date: 20071008
  Transmission Date: 20080405
  Serious: Yes (Other)
  Sender: FDA-Public Use
  Company Number: US-PFIZER INC-2006061714

PATIENT
  Sex: Male
  Weight: 77.1 kg

DRUGS (4)
  1. LIPITOR [Suspect]
     Indication: PAIN
     Route: 048
     Dates: start: 20051111, end: 20060601
  2. LIPITOR [Suspect]
     Indication: CARDIAC DISORDER
  3. LIPITOR [Suspect]
     Indication: HIGH DENSITY LIPOPROTEIN DECREASED
  4. ASPIRIN [Concomitant]
     Route: 065

REACTIONS (28)
  - ACNE [None]
  - BREAST DISCOLOURATION [None]
  - BREAST DISCOMFORT [None]
  - BREAST DISORDER MALE [None]
  - CONTUSION [None]
  - DRY SKIN [None]
  - ELECTROLYTE IMBALANCE [None]
  - FATIGUE [None]
  - GAIT DISTURBANCE [None]
  - HAEMORRHAGE [None]
  - HEPATIC ENZYME INCREASED [None]
  - HEPATIC STEATOSIS [None]
  - MOOD ALTERED [None]
  - MUSCULAR WEAKNESS [None]
  - MYALGIA [None]
  - NIPPLE DISORDER [None]
  - OLIGURIA [None]
  - PAIN [None]
  - PARAESTHESIA [None]
  - PERIORBITAL HAEMATOMA [None]
  - PHOTOPSIA [None]
  - PROSTATIC DISORDER [None]
  - PRURITUS [None]
  - RASH [None]
  - RETINOPATHY [None]
  - UNEVALUABLE EVENT [None]
  - VISUAL DISTURBANCE [None]
  - VITREOUS FLOATERS [None]
